FAERS Safety Report 7202784-6 (Version None)
Quarter: 2010Q4

REPORT INFORMATION
  Report Type: 
  Country: None (occurrence: None)
  Receive Date: 20101229
  Receipt Date: 20101217
  Transmission Date: 20110411
  Serious: Yes (Hospitalization)
  Sender: FDA-Public Use
  Company Number: US-ELI_LILLY_AND_COMPANY-US201012005185

PATIENT
  Sex: Female

DRUGS (13)
  1. FORTEO [Suspect]
     Indication: OSTEOPOROSIS
     Dosage: 20 UG, MONTHLY (1/M)
     Dates: start: 20100801, end: 20100901
  2. FORTEO [Suspect]
     Dosage: 20 U, MONTHLY (1/M)
     Dates: start: 20101001
  3. VITAMIN D [Concomitant]
  4. CALCIUM [Concomitant]
  5. HYDROXYCHLOROQUINE SULFATE [Concomitant]
  6. COUMADIN [Concomitant]
  7. PANTOPRAZOLE [Concomitant]
  8. PROZAC [Concomitant]
  9. ACTONEL [Concomitant]
  10. VICODIN [Concomitant]
  11. FLAXSEED OIL [Concomitant]
  12. LOVAZA [Concomitant]
  13. MULTI-VITAMIN [Concomitant]

REACTIONS (2)
  - FALL [None]
  - SPINAL FRACTURE [None]
